FAERS Safety Report 11342875 (Version 2)
Quarter: 2015Q3

REPORT INFORMATION
  Report Type: Spontaneous
  Country: JP (occurrence: JP)
  Receive Date: 20150805
  Receipt Date: 20150911
  Transmission Date: 20151125
  Serious: Yes (Death, Other)
  Sender: FDA-Public Use
  Company Number: JP-BAXTER-2015BAX042878

PATIENT
  Age: 31 Year
  Sex: Male

DRUGS (17)
  1. IFOSFAMIDE FOR INJECTION [Suspect]
     Active Substance: IFOSFAMIDE
     Dosage: SECOND COURSE
     Route: 042
     Dates: start: 20130612, end: 20130618
  2. CELLTOP_ETOPOSIDE 20.00 MG/ML_SOLUTION FOR INJECTION_VIAL, GLASS [Suspect]
     Active Substance: ETOPOSIDE
     Dosage: THIRD COURSE
     Route: 042
     Dates: start: 20130723, end: 20130727
  3. CISPLATIN. [Suspect]
     Active Substance: CISPLATIN
     Dosage: FOURTH COURSE
     Route: 042
     Dates: start: 20130831, end: 20130904
  4. IFOSFAMIDE FOR INJECTION [Suspect]
     Active Substance: IFOSFAMIDE
     Dosage: FOURTH COURSE
     Route: 042
     Dates: start: 20130831, end: 20130904
  5. FLUOROURACIL. [Suspect]
     Active Substance: FLUOROURACIL
     Indication: AESTHESIONEUROBLASTOMA
     Route: 065
     Dates: start: 20130424
  6. APREPITANT. [Concomitant]
     Active Substance: APREPITANT
     Indication: PROPHYLAXIS OF NAUSEA AND VOMITING
     Route: 048
     Dates: start: 20130523, end: 20130526
  7. APREPITANT. [Concomitant]
     Active Substance: APREPITANT
     Route: 048
     Dates: start: 20130618, end: 20130618
  8. IFOSFAMIDE FOR INJECTION [Suspect]
     Active Substance: IFOSFAMIDE
     Indication: AESTHESIONEUROBLASTOMA
     Dosage: FIRST COURSE
     Route: 042
     Dates: start: 20130522, end: 20130526
  9. CELLTOP_ETOPOSIDE 20.00 MG/ML_SOLUTION FOR INJECTION_VIAL, GLASS [Suspect]
     Active Substance: ETOPOSIDE
     Dosage: SECOND COURSE
     Route: 042
     Dates: start: 20130612, end: 20130618
  10. CISPLATIN. [Suspect]
     Active Substance: CISPLATIN
     Dosage: THIRD COURSE
     Route: 042
     Dates: start: 20130723, end: 20130727
  11. CISPLATIN. [Suspect]
     Active Substance: CISPLATIN
     Route: 065
     Dates: start: 20130424
  12. CISPLATIN. [Suspect]
     Active Substance: CISPLATIN
     Dosage: SECOND COURSE
     Route: 042
     Dates: start: 20130612, end: 20130618
  13. IFOSFAMIDE FOR INJECTION [Suspect]
     Active Substance: IFOSFAMIDE
     Dosage: THIRD COURSE
     Route: 042
     Dates: start: 20130723, end: 20130727
  14. CELLTOP_ETOPOSIDE 20.00 MG/ML_SOLUTION FOR INJECTION_VIAL, GLASS [Suspect]
     Active Substance: ETOPOSIDE
     Indication: AESTHESIONEUROBLASTOMA
     Dosage: FIRST COURSE
     Route: 042
     Dates: start: 20130522, end: 20130526
  15. CELLTOP_ETOPOSIDE 20.00 MG/ML_SOLUTION FOR INJECTION_VIAL, GLASS [Suspect]
     Active Substance: ETOPOSIDE
     Dosage: FOURTH COURSE
     Route: 042
     Dates: start: 20130831, end: 20130904
  16. CISPLATIN. [Suspect]
     Active Substance: CISPLATIN
     Indication: AESTHESIONEUROBLASTOMA
     Dosage: FIRST COURSE
     Route: 042
     Dates: start: 20130522, end: 20130526
  17. DOCETAXEL. [Suspect]
     Active Substance: DOCETAXEL
     Indication: AESTHESIONEUROBLASTOMA
     Route: 065
     Dates: start: 20130424

REACTIONS (1)
  - Encephalitis [Fatal]

NARRATIVE: CASE EVENT DATE: 20130928
